FAERS Safety Report 19651559 (Version 1)
Quarter: 2021Q3

REPORT INFORMATION
  Report Type: Spontaneous
  Country: US (occurrence: US)
  Receive Date: 20210803
  Receipt Date: 20210803
  Transmission Date: 20211014
  Serious: Yes (Hospitalization, Other)
  Sender: FDA-Public Use
  Company Number: US-MYLANLABS-2021M1048139

PATIENT
  Age: 21 Year
  Sex: Male

DRUGS (5)
  1. LORAZEPAM. [Concomitant]
     Active Substance: LORAZEPAM
     Dosage: 3 MILLIGRAM, TID
     Route: 065
  2. CLOZAPINE. [Suspect]
     Active Substance: CLOZAPINE
     Indication: SCHIZOPHRENIA
     Dosage: 150 MILLIGRAM, HS {(NIGHTLY OVER 15 DAYS)}
     Route: 065
  3. LORAZEPAM. [Concomitant]
     Active Substance: LORAZEPAM
     Indication: CATATONIA
     Dosage: 1 MILLIGRAM, TID
     Route: 065
  4. RISPERIDONE. [Suspect]
     Active Substance: RISPERIDONE
     Indication: SCHIZOPHRENIA
     Dosage: SCHEDULED TO RECEIVE A MAXIMUM DOSE OF 3 MG/DAY FOR 7 WEEKS
     Route: 065
  5. LORAZEPAM. [Concomitant]
     Active Substance: LORAZEPAM
     Dosage: 9 MILLIGRAM (THE DOSE WAS TITRATED UP TO 9 MG THREE TIMES DAILY)
     Route: 065

REACTIONS (7)
  - Condition aggravated [Unknown]
  - Myocarditis [Recovered/Resolved]
  - Hypotension [Unknown]
  - Dystonia [Unknown]
  - Catatonia [Unknown]
  - Drooling [Unknown]
  - Headache [Unknown]
